FAERS Safety Report 20200492 (Version 1)
Quarter: 2021Q4

REPORT INFORMATION
  Report Type: Spontaneous
  Country: US (occurrence: US)
  Receive Date: 20211217
  Receipt Date: 20211217
  Transmission Date: 20220304
  Serious: No
  Sender: FDA-Public Use
  Company Number: US-PERRIGO-21US030038

PATIENT
  Age: 36 Year
  Sex: Female
  Weight: 85.261 kg

DRUGS (2)
  1. CLINDAMYCIN PHOSPHATE [Suspect]
     Active Substance: CLINDAMYCIN PHOSPHATE
     Indication: Product used for unknown indication
     Dosage: ONE APPLICATION, SINGLE
     Route: 061
     Dates: start: 20211018, end: 20211018
  2. VITAMIN D NOS [Concomitant]
     Active Substance: VITAMIN D NOS
     Indication: Supplementation therapy
     Dosage: UNK
     Route: 065

REACTIONS (1)
  - Application site erythema [Recovered/Resolved]

NARRATIVE: CASE EVENT DATE: 20211018
